FAERS Safety Report 4666102-X (Version None)
Quarter: 2005Q2

REPORT INFORMATION
  Report Type: 
  Country: None (occurrence: None)
  Receive Date: 20050519
  Receipt Date: 20050509
  Transmission Date: 20051028
  Serious: Yes (Other)
  Sender: FDA-Public Use
  Company Number: FR-GLAXOSMITHKLINE-B0380985A

PATIENT
  Age: 38 Year
  Sex: Female

DRUGS (1)
  1. DEROXAT [Suspect]
     Indication: BIPOLAR II DISORDER
     Dosage: 50MG PER DAY
     Route: 048

REACTIONS (1)
  - CARPAL TUNNEL SYNDROME [None]
